FAERS Safety Report 24812780 (Version 3)
Quarter: 2025Q4

REPORT INFORMATION
  Report Type: Spontaneous
  Country: EU (occurrence: EU)
  Receive Date: 20250107
  Receipt Date: 20251003
  Transmission Date: 20260117
  Serious: Yes (Hospitalization)
  Sender: ASCENDIS PHARMA
  Company Number: EU-ASCENDIS PHARMA-2025EU007463

PATIENT

DRUGS (5)
  1. YORVIPATH [Suspect]
     Active Substance: PALOPEGTERIPARATIDE
     Indication: Hypoparathyroidism
     Dosage: 18 MICROGRAM, QD
     Route: 065
     Dates: start: 20241218
  2. YORVIPATH [Suspect]
     Active Substance: PALOPEGTERIPARATIDE
     Dosage: 24 MICROGRAM, QD
     Route: 065
  3. LEVOTHYROXINE [Concomitant]
     Active Substance: LEVOTHYROXINE
     Indication: Hypothyroidism
     Dosage: 1 DOSAGE FORM, QD (137)
     Route: 048
     Dates: start: 20210423
  4. CALCIUM [Concomitant]
     Active Substance: CALCIUM
     Indication: Hypoparathyroidism
     Dosage: 1 DOSAGE FORM, QD (500)
     Route: 048
     Dates: start: 20210423, end: 20250103
  5. CHOLECALCIFEROL [Concomitant]
     Active Substance: CHOLECALCIFEROL
     Indication: Product used for unknown indication
     Dosage: 1 DOSAGE FORM (50000, 1/EVERY 15 DAYS)
     Route: 048

REACTIONS (1)
  - Pericarditis [Recovered/Resolved]

NARRATIVE: CASE EVENT DATE: 20241229
